FAERS Safety Report 22127137 (Version 2)
Quarter: 2023Q1

REPORT INFORMATION
  Report Type: Report from Study
  Country: CA (occurrence: CA)
  Receive Date: 20230322
  Receipt Date: 20230327
  Transmission Date: 20230417
  Serious: Yes (Hospitalization, Other)
  Sender: FDA-Public Use
  Company Number: CA-HORIZON THERAPEUTICS-HZN-2023-002160

PATIENT

DRUGS (4)
  1. RAVICTI [Suspect]
     Active Substance: GLYCEROL PHENYLBUTYRATE
     Indication: Ornithine transcarbamoylase deficiency
     Dosage: 1.4 ML, TID
     Route: 065
     Dates: start: 20211219
  2. RAVICTI [Suspect]
     Active Substance: GLYCEROL PHENYLBUTYRATE
     Dosage: 1.5 ML, TID
     Route: 065
     Dates: start: 202303
  3. CITRULLINE [Concomitant]
     Active Substance: CITRULLINE
     Indication: Product used for unknown indication
     Dosage: 500 MG, TID
     Route: 065
  4. GLYCEROL PHENYLBUTYRATE [Concomitant]
     Active Substance: GLYCEROL PHENYLBUTYRATE
     Indication: Product used for unknown indication
     Dosage: 825 MG, EVERY 6 HOURLY
     Route: 065

REACTIONS (3)
  - Hyperammonaemic crisis [Recovered/Resolved]
  - Nasopharyngitis [Recovered/Resolved]
  - Feeling abnormal [Recovered/Resolved]

NARRATIVE: CASE EVENT DATE: 20220930
